FAERS Safety Report 9470733 (Version 1)
Quarter: 2013Q3

REPORT INFORMATION
  Report Type: Spontaneous
  Country: US (occurrence: None)
  Receive Date: 20130820
  Receipt Date: 20130820
  Transmission Date: 20140515
  Serious: Yes (Other)
  Sender: FDA-Public Use
  Company Number: None

PATIENT
  Age: 16 None
  Sex: 0

DRUGS (1)
  1. ESTARYLLA [Suspect]
     Route: 048
     Dates: start: 201402

REACTIONS (6)
  - Headache [None]
  - Abdominal pain [None]
  - Abdominal pain upper [None]
  - Metrorrhagia [None]
  - Fear of eating [None]
  - Product quality issue [None]
